FAERS Safety Report 8306631-0 (Version None)
Quarter: 2012Q2

REPORT INFORMATION
  Report Type: 
  Country: None (occurrence: None)
  Receive Date: 20120424
  Receipt Date: 20120412
  Transmission Date: 20120825
  Serious: Yes (Death)
  Sender: FDA-Public Use
  Company Number: US-CELGENEUS-163-21660-12032914

PATIENT
  Sex: Male

DRUGS (7)
  1. XELODA [Concomitant]
     Route: 065
     Dates: start: 20100101
  2. ABRAXANE [Suspect]
     Route: 065
  3. PLATINOL [Concomitant]
     Route: 065
     Dates: start: 20110101
  4. TAXOFEN [Concomitant]
     Route: 065
     Dates: start: 20100101
  5. TARCEVA [Concomitant]
     Route: 065
     Dates: start: 20110101
  6. GEMZAR [Concomitant]
     Route: 065
     Dates: start: 20100101
  7. CAMPTOSAR [Concomitant]
     Route: 065
     Dates: start: 20110101

REACTIONS (1)
  - PANCREATIC CARCINOMA [None]
